FAERS Safety Report 5304837-6 (Version None)
Quarter: 2007Q2

REPORT INFORMATION
  Report Type: 
  Country: None (occurrence: None)
  Receive Date: 20070423
  Receipt Date: 20070418
  Transmission Date: 20071010
  Serious: Yes (Other)
  Sender: FDA-Public Use
  Company Number: IN-BOEHRINGER INGELHEIM PHARMACEUTICALS, INC.-2007-DE-02215GD

PATIENT
  Age: 8 Year
  Sex: Male

DRUGS (4)
  1. CLONIDINE [Suspect]
     Indication: ATTENTION DEFICIT/HYPERACTIVITY DISORDER
     Dosage: GRADUALLY INCREASED IN 1 WEEK TO 100 MCG; 100 MCG FOR APPROX. 3 WEEKS, THEN TAPERED OFF WITHIN 5 DAY
  2. CLONIDINE [Suspect]
     Indication: INSOMNIA
  3. CLONIDINE [Suspect]
     Indication: DECREASED APPETITE
  4. METHYLPHENIDATE HCL [Suspect]
     Indication: ATTENTION DEFICIT/HYPERACTIVITY DISORDER

REACTIONS (2)
  - CONDITION AGGRAVATED [None]
  - DRUG INTERACTION [None]
